FAERS Safety Report 8775130 (Version 3)
Quarter: 2013Q2

REPORT INFORMATION
  Report Type: Report from Study
  Country: JP (occurrence: JP)
  Receive Date: 20120910
  Receipt Date: 20130529
  Transmission Date: 20140414
  Serious: Yes (Other)
  Sender: FDA-Public Use
  Company Number: JP-009507513-1209JPN002039

PATIENT
  Age: 58 Year
  Sex: Male
  Weight: 54 kg

DRUGS (16)
  1. PEGINTRON [Suspect]
     Indication: CHRONIC HEPATITIS C
     Dosage: 1.5 MICROGRAM PER KILOGRAM, QW
     Route: 058
     Dates: start: 20120515, end: 20121102
  2. REBETOL [Suspect]
     Indication: CHRONIC HEPATITIS C
     Dosage: 600 MG, QD
     Route: 048
     Dates: start: 20120515, end: 20120717
  3. REBETOL [Suspect]
     Dosage: 400 MG,QD
     Route: 048
     Dates: start: 20120718, end: 20120816
  4. REBETOL [Suspect]
     Dosage: 200 MG,QD
     Route: 048
     Dates: start: 20120817, end: 20120913
  5. REBETOL [Suspect]
     Dosage: 400 MG, QD
     Route: 048
     Dates: start: 20120914
  6. TELAVIC [Suspect]
     Indication: CHRONIC HEPATITIS C
     Dosage: 2500 MG, QD
     Route: 048
     Dates: start: 20120515, end: 20120810
  7. URSO [Concomitant]
     Indication: CHRONIC HEPATITIS C
     Dosage: 300 MG, QD
     Route: 048
     Dates: end: 20120524
  8. DIOVAN [Concomitant]
     Indication: HYPERTENSION
     Dosage: 80 MG, QD
     Route: 048
     Dates: end: 20120615
  9. PREMINENT TABLETS [Concomitant]
     Indication: HYPERTENSION
     Dosage: 1 DOSAGE FORM, QD
     Route: 048
     Dates: end: 20120607
  10. GASTER D [Concomitant]
     Indication: PROPHYLAXIS
     Dosage: 20 MG, QD
     Route: 048
     Dates: start: 20120518
  11. MUCOSTA [Concomitant]
     Indication: PROPHYLAXIS
     Dosage: 300 MG, QD
     Route: 048
     Dates: start: 20120518
  12. MARZULENE-S [Concomitant]
     Indication: PROPHYLAXIS
     Dosage: 2.01 G, QD
     Route: 048
     Dates: start: 20120518
  13. DOGMATYL [Concomitant]
     Dosage: 150 MG, QD
     Route: 048
  14. ZYLORIC [Concomitant]
     Indication: BLOOD URIC ACID INCREASED
     Dosage: 200 MG, QD
     Route: 048
  15. CRAVIT [Concomitant]
     Dosage: 500 MG, QD
     Route: 048
     Dates: end: 20120706
  16. MYSLEE [Concomitant]
     Indication: INSOMNIA
     Dosage: 10 MG, QD
     Route: 048

REACTIONS (3)
  - Retinopathy [Recovering/Resolving]
  - Anaemia [Recovering/Resolving]
  - Haemoglobin decreased [Recovered/Resolved]
